FAERS Safety Report 12094001 (Version 1)
Quarter: 2016Q1

REPORT INFORMATION
  Report Type: Spontaneous
  Country: US (occurrence: US)
  Receive Date: 20160219
  Receipt Date: 20160219
  Transmission Date: 20160526
  Serious: No
  Sender: FDA-Public Use
  Company Number: US-GLAXOSMITHKLINE-US2016GSK019735

PATIENT
  Sex: Female

DRUGS (2)
  1. ALBUTEROL INHALATIONAL POWDER [Suspect]
     Active Substance: ALBUTEROL
     Indication: ASTHMA
     Dosage: UNK
  2. ADVAIR DISKUS [Suspect]
     Active Substance: FLUTICASONE PROPIONATE\SALMETEROL XINAFOATE
     Indication: ASTHMA
     Dosage: UNK

REACTIONS (6)
  - Palpitations [Unknown]
  - Fatigue [Unknown]
  - Adverse drug reaction [Unknown]
  - Disorientation [Unknown]
  - Energy increased [Unknown]
  - Disturbance in attention [Unknown]
